FAERS Safety Report 17989173 (Version 1)
Quarter: 2020Q3

REPORT INFORMATION
  Report Type: Spontaneous
  Country: GB (occurrence: GB)
  Receive Date: 20200707
  Receipt Date: 20200707
  Transmission Date: 20201103
  Serious: Yes (Other)
  Sender: FDA-Public Use
  Company Number: GB-PFIZER INC-2020256990

PATIENT
  Age: 19 Year
  Sex: Female
  Weight: 53.52 kg

DRUGS (1)
  1. DEPO?PROVERA [Suspect]
     Active Substance: MEDROXYPROGESTERONE ACETATE
     Indication: CONTRACEPTION
     Dosage: UNK
     Route: 051
     Dates: start: 20140101, end: 20200618

REACTIONS (3)
  - Hyperhidrosis [Not Recovered/Not Resolved]
  - Night sweats [Unknown]
  - Temperature regulation disorder [Not Recovered/Not Resolved]

NARRATIVE: CASE EVENT DATE: 20140101
